FAERS Safety Report 19788277 (Version 1)
Quarter: 2021Q3

REPORT INFORMATION
  Report Type: Spontaneous
  Country: IN (occurrence: IN)
  Receive Date: 20210903
  Receipt Date: 20210903
  Transmission Date: 20211014
  Serious: Yes (Other)
  Sender: FDA-Public Use
  Company Number: IN-PFIZER INC-2019544853

PATIENT
  Age: 79 Year
  Sex: Female

DRUGS (4)
  1. PALBACE [Suspect]
     Active Substance: PALBOCICLIB
     Indication: BREAST CANCER METASTATIC
     Dosage: 100 MG, CYCLIC (21 DAYS ON 7 DAYS OFF)
     Route: 048
     Dates: start: 20190117
  2. PALBACE [Suspect]
     Active Substance: PALBOCICLIB
     Dosage: 100 MG, OD, 21 DAYS (ILLEGIBLE; 3 BLISTER STRIPS OF 7 CAPSULES EACH)
     Route: 048
  3. LETROZOLE. [Concomitant]
     Active Substance: LETROZOLE
     Dosage: 2.5 MG, 1X/DAY (1?0?0 1MS)
  4. PALBACE [Suspect]
     Active Substance: PALBOCICLIB
     Dosage: 125 MG, 1X/DAY
     Route: 048
     Dates: start: 20190208

REACTIONS (3)
  - Anxiety [Unknown]
  - Insomnia [Unknown]
  - Cataract [Unknown]
